FAERS Safety Report 8358735-4 (Version None)
Quarter: 2012Q2

REPORT INFORMATION
  Report Type: 
  Country: None (occurrence: None)
  Receive Date: 20120514
  Receipt Date: 20120417
  Transmission Date: 20120825
  Serious: Yes (Hospitalization, Other)
  Sender: FDA-Public Use
  Company Number: US-BAXTER-2012BAX003085

PATIENT
  Sex: Male
  Weight: 81.82 kg

DRUGS (14)
  1. CYTOXAN [Suspect]
     Route: 042
     Dates: start: 20081001, end: 20090301
  2. IMMUNE GLOBULIN NOS [Concomitant]
     Route: 042
  3. CLARINEX-D [Concomitant]
     Indication: CHRONIC SINUSITIS
     Route: 048
     Dates: end: 20120401
  4. RITUXAN [Suspect]
     Route: 042
     Dates: start: 20081001, end: 20090301
  5. VALTREX [Concomitant]
     Route: 048
  6. PENTOSTATIN [Suspect]
     Route: 042
     Dates: start: 20081001, end: 20081201
  7. GAMIMUNE [Concomitant]
     Dosage: 15-20GRAMS,EVERY MONTH
     Route: 042
  8. STEROIDS [Concomitant]
     Indication: INFLUENZA
     Route: 048
     Dates: start: 20120301, end: 20120301
  9. CYANOCOBALAMIN [Concomitant]
     Route: 048
  10. NEXIUM [Concomitant]
     Route: 048
  11. LEVOXYL [Concomitant]
     Route: 048
  12. AMLODIPINE BESYLATE [Concomitant]
     Route: 048
  13. VITAMIN B-12 [Concomitant]
     Route: 048
  14. CELEBREX [Concomitant]
     Route: 048

REACTIONS (5)
  - HERPES ZOSTER [None]
  - JOINT SWELLING [None]
  - NEUROPATHY PERIPHERAL [None]
  - PYREXIA [None]
  - ARTHRALGIA [None]
